FAERS Safety Report 5452197-2 (Version None)
Quarter: 2007Q3

REPORT INFORMATION
  Report Type: 
  Country: None (occurrence: None)
  Receive Date: 20070914
  Receipt Date: 20070906
  Transmission Date: 20080115
  Serious: Yes (Other)
  Sender: FDA-Public Use
  Company Number: PHEH2007US12194

PATIENT
  Age: 64 Year
  Sex: Female

DRUGS (2)
  1. GEODON [Concomitant]
  2. CLOZARIL [Suspect]
     Indication: SCHIZOPHRENIA

REACTIONS (3)
  - ANTIPSYCHOTIC DRUG LEVEL INCREASED [None]
  - SURGERY [None]
  - THYROID MASS [None]
